FAERS Safety Report 14233100 (Version 1)
Quarter: 2017Q4

REPORT INFORMATION
  Report Type: Spontaneous
  Country: US (occurrence: None)
  Receive Date: 20171128
  Receipt Date: 20171128
  Transmission Date: 20180321
  Serious: Yes (Hospitalization)
  Sender: FDA-Public Use
  Company Number: None

PATIENT
  Age: 67 Year
  Sex: Female
  Weight: 51.4 kg

DRUGS (3)
  1. ZOSYN [Concomitant]
     Active Substance: PIPERACILLIN SODIUM\TAZOBACTAM SODIUM
  2. ERBITUX [Suspect]
     Active Substance: CETUXIMAB
     Dates: end: 20150616
  3. VANCOMYCIN [Concomitant]
     Active Substance: VANCOMYCIN

REACTIONS (4)
  - Hypotension [None]
  - Ischaemia [None]
  - Pneumonia aspiration [None]
  - Fistula [None]

NARRATIVE: CASE EVENT DATE: 20170917
